FAERS Safety Report 7486219-4 (Version None)
Quarter: 2011Q2

REPORT INFORMATION
  Report Type: 
  Country: None (occurrence: None)
  Receive Date: 20110517
  Receipt Date: 20110128
  Transmission Date: 20111010
  Serious: No
  Sender: FDA-Public Use
  Company Number: A0910213A

PATIENT
  Age: 52 Year
  Sex: Male
  Weight: 102.3 kg

DRUGS (1)
  1. VOTRIENT [Suspect]
     Dosage: 800MG SEE DOSAGE TEXT
     Route: 048

REACTIONS (2)
  - DIARRHOEA [None]
  - DRUG INEFFECTIVE [None]
